FAERS Safety Report 11054133 (Version 4)
Quarter: 2016Q1

REPORT INFORMATION
  Report Type: Report from Study
  Country: DE (occurrence: DE)
  Receive Date: 20150422
  Receipt Date: 20160324
  Transmission Date: 20160525
  Serious: Yes (Hospitalization)
  Sender: FDA-Public Use
  Company Number: DE-ROCHE-1565736

PATIENT
  Age: 64 Year
  Sex: Male
  Weight: 97 kg

DRUGS (28)
  1. BEVACIZUMAB [Suspect]
     Active Substance: BEVACIZUMAB
     Indication: COLORECTAL CANCER
     Dosage: 480 MG
     Route: 042
     Dates: start: 20131018
  2. FOLINIC ACID [Suspect]
     Active Substance: LEUCOVORIN
     Route: 042
     Dates: end: 20150602
  3. IRINOTECAN [Suspect]
     Active Substance: IRINOTECAN
     Dosage: 363 - 366.7 MG
     Route: 042
     Dates: start: 20140903, end: 20150121
  4. JANUVIA [Concomitant]
     Active Substance: SITAGLIPTIN PHOSPHATE
     Indication: DIABETES MELLITUS
     Route: 048
     Dates: start: 20000101
  5. VOTUM (GERMANY) [Concomitant]
     Active Substance: OLMESARTAN MEDOXOMIL
     Indication: HYPERTENSION
     Route: 048
     Dates: start: 20000101, end: 20150614
  6. XALATAN [Concomitant]
     Active Substance: LATANOPROST
     Route: 065
     Dates: start: 20150615
  7. BEVACIZUMAB [Suspect]
     Active Substance: BEVACIZUMAB
     Route: 042
     Dates: start: 20150521
  8. FOLINIC ACID [Suspect]
     Active Substance: LEUCOVORIN
     Dosage: 403.4 - 407.4
     Route: 042
     Dates: start: 20140903, end: 20150121
  9. IRINOTECAN [Suspect]
     Active Substance: IRINOTECAN
     Indication: COLORECTAL CANCER
     Dosage: 351.9 - 370.1 MG
     Route: 042
     Dates: start: 20130930, end: 20140723
  10. GRANISETRON [Concomitant]
     Active Substance: GRANISETRON
     Indication: PROPHYLAXIS OF NAUSEA AND VOMITING
     Dosage: BEFORE CTX
     Route: 042
     Dates: end: 20130930
  11. 5-FLUOROURACIL [Suspect]
     Active Substance: FLUOROURACIL
     Dosage: 806.8 -814.8
     Route: 040
     Dates: start: 20140903, end: 20150121
  12. DEXAMETHASON [Concomitant]
     Active Substance: DEXAMETHASONE
     Indication: PROPHYLAXIS OF NAUSEA AND VOMITING
     Dosage: BEFORE CTX
     Route: 042
     Dates: start: 20130930
  13. SINGULAIR [Concomitant]
     Active Substance: MONTELUKAST SODIUM
     Route: 048
     Dates: start: 20150728
  14. MONTELUKAST [Concomitant]
     Active Substance: MONTELUKAST SODIUM
     Indication: ASTHMA
     Route: 048
     Dates: start: 20150615
  15. FOLINIC ACID [Suspect]
     Active Substance: LEUCOVORIN
     Indication: COLORECTAL CANCER
     Dosage: 782 - 822.4 MG
     Route: 042
     Dates: start: 20130930, end: 20140723
  16. SINGULAIR [Concomitant]
     Active Substance: MONTELUKAST SODIUM
     Indication: ASTHMA
     Route: 048
  17. DIA-GESIC [Concomitant]
     Indication: PAIN
     Route: 065
     Dates: start: 20150615
  18. SALBUTAMOL [Concomitant]
     Active Substance: ALBUTEROL
     Indication: ASTHMA
     Route: 048
     Dates: start: 20150615
  19. BEVACIZUMAB [Suspect]
     Active Substance: BEVACIZUMAB
     Dosage: 425 MG
     Route: 042
     Dates: start: 20150123
  20. 5-FLUOROURACIL [Suspect]
     Active Substance: FLUOROURACIL
     Indication: COLORECTAL CANCER
     Dosage: 782-822 MG
     Route: 040
     Dates: start: 20130930, end: 20140723
  21. 5-FLUOROURACIL [Suspect]
     Active Substance: FLUOROURACIL
     Route: 042
     Dates: end: 20150602
  22. TAMSULOSIN [Concomitant]
     Active Substance: TAMSULOSIN
     Indication: PROPHYLAXIS
     Route: 065
     Dates: start: 20150615
  23. 5-FLUOROURACIL [Suspect]
     Active Substance: FLUOROURACIL
     Dosage: 4692-4934.4 MG
     Route: 041
     Dates: start: 20130930, end: 20140725
  24. SINGULAIR [Concomitant]
     Active Substance: MONTELUKAST SODIUM
     Route: 048
     Dates: start: 20000101, end: 20150614
  25. 5-FLUOROURACIL [Suspect]
     Active Substance: FLUOROURACIL
     Dosage: 4840.8 - 4888.8 MG
     Route: 041
     Dates: start: 20140903, end: 20150123
  26. IRINOTECAN [Suspect]
     Active Substance: IRINOTECAN
     Route: 042
     Dates: end: 20150602
  27. PANTOZOL [Concomitant]
     Active Substance: PANTOPRAZOLE SODIUM
     Indication: PROPHYLAXIS
     Route: 048
     Dates: start: 20000101
  28. CANDESARTAN [Concomitant]
     Active Substance: CANDESARTAN
     Indication: HYPERTENSION
     Route: 048
     Dates: start: 20150615

REACTIONS (2)
  - Gastrointestinal inflammation [Recovered/Resolved]
  - Gastric disorder [Recovered/Resolved]

NARRATIVE: CASE EVENT DATE: 20150210
